FAERS Safety Report 6377482-1 (Version None)
Quarter: 2009Q3

REPORT INFORMATION
  Report Type: 
  Country: None (occurrence: None)
  Receive Date: 20090925
  Receipt Date: 20090921
  Transmission Date: 20100115
  Serious: Yes (Death)
  Sender: FDA-Public Use
  Company Number: CN-ROCHE-657762

PATIENT
  Sex: Male
  Weight: 60 kg

DRUGS (3)
  1. CAPECITABINE [Suspect]
     Dosage: FREQUENCY: D1-D14Q3W.  ROUTE: BID PO.  THERAPY PERMANENTLY DISCONTINUED.
     Route: 048
     Dates: start: 20090807
  2. BLINDED BEVACIZUMAB [Suspect]
     Dosage: DOSAGE FORM: INFUSION.  FREQUENCY: D1Q3W.  THERAPY PERMANENTLY DISCONTINUED
     Route: 042
     Dates: start: 20090807
  3. CISPLATIN [Suspect]
     Dosage: DOSAGE FORM: INFUSION.  FREQUENCY: D1Q3W.  THERAPY PERMANENTLY DISCONTINUED.
     Route: 042
     Dates: start: 20090807

REACTIONS (3)
  - COMA [None]
  - DRUG INEFFECTIVE [None]
  - SEPTIC SHOCK [None]
